FAERS Safety Report 8098353-9 (Version None)
Quarter: 2012Q1

REPORT INFORMATION
  Report Type: 
  Country: None (occurrence: None)
  Receive Date: 20120131
  Receipt Date: 20120125
  Transmission Date: 20120608
  Serious: Yes (Congenital Anomaly, Other)
  Sender: FDA-Public Use
  Company Number: GB-GILEAD-2011-0044197

PATIENT
  Sex: Male

DRUGS (13)
  1. INSULIN [Concomitant]
     Route: 064
  2. LABETALOL HCL [Concomitant]
     Route: 064
  3. NORVIR [Suspect]
     Indication: HIV INFECTION
     Dosage: 100 MG, QD
     Route: 064
     Dates: start: 20100915, end: 20110913
  4. METFORMIN HCL [Concomitant]
     Route: 064
  5. EFAVIRENZ [Suspect]
     Indication: HIV INFECTION
     Dosage: 600 MG, QD
     Route: 064
     Dates: start: 20100316, end: 20100615
  6. ASPIRIN [Concomitant]
     Route: 064
  7. RAMIPRIL [Concomitant]
     Route: 064
  8. FERROUS SULFATE TAB [Concomitant]
     Route: 064
  9. EFAVIRENZ/EMTRICITABINE/TENOFOVIR DISOPROXIL FUMARATE [Suspect]
     Dosage: 1 DF, QD
     Route: 064
     Dates: start: 20100615, end: 20100915
  10. EFAVIRENZ/EMTRICITABINE/TENOFOVIR DISOPROXIL FUMARATE [Suspect]
     Indication: HIV INFECTION
     Dosage: 1 DF, QD
     Route: 064
     Dates: start: 20110913
  11. ATAZANAVIR [Suspect]
     Indication: HIV INFECTION
     Dosage: 300 MG, QD
     Route: 064
     Dates: start: 20100915, end: 20110913
  12. EMTRICITABINE/TENOFOVIR DISOPROXIL FUMARATE [Suspect]
     Indication: HIV INFECTION
     Dosage: 1 DF, QD
     Route: 064
     Dates: start: 20100915, end: 20110913
  13. EMTRICITABINE/TENOFOVIR DISOPROXIL FUMARATE [Suspect]
     Dosage: 1 UNK, UNK
     Route: 064
     Dates: start: 20100316, end: 20100615

REACTIONS (6)
  - CONGENITAL TERATOMA [None]
  - FOETAL EXPOSURE DURING PREGNANCY [None]
  - ULTRASOUND ANTENATAL SCREEN ABNORMAL [None]
  - CONJUNCTIVAL HAEMORRHAGE [None]
  - FACIAL PARESIS [None]
  - RESPIRATORY DISTRESS [None]
